FAERS Safety Report 25786688 (Version 2)
Quarter: 2025Q3

REPORT INFORMATION
  Report Type: Report from Study
  Country: AU (occurrence: AU)
  Receive Date: 20250910
  Receipt Date: 20250923
  Transmission Date: 20251020
  Serious: No
  Sender: TAKEDA
  Company Number: AU-TAKEDA-2023TUS031625

PATIENT
  Sex: Female
  Weight: 68 kg

DRUGS (2)
  1. VEDOLIZUMAB [Suspect]
     Active Substance: VEDOLIZUMAB
     Indication: Crohn^s disease
  2. VEDOLIZUMAB [Suspect]
     Active Substance: VEDOLIZUMAB
     Indication: Off label use

REACTIONS (1)
  - Off label use [Unknown]
